FAERS Safety Report 17124279 (Version 1)
Quarter: 2019Q4

REPORT INFORMATION
  Report Type: Spontaneous
  Country: US (occurrence: US)
  Receive Date: 20191206
  Receipt Date: 20191206
  Transmission Date: 20200122
  Serious: No
  Sender: FDA-Public Use
  Company Number: US-TAKEDA-2019TUS069180

PATIENT
  Age: 34 Year
  Sex: Female
  Weight: 112.93 kg

DRUGS (2)
  1. DEXILANT [Suspect]
     Active Substance: DEXLANSOPRAZOLE
     Indication: IMPAIRED GASTRIC EMPTYING
     Dosage: 60 MILLIGRAM, QD
     Route: 065
     Dates: start: 2017
  2. ERY                                /00020901/ [Concomitant]
     Active Substance: ERYTHROMYCIN
     Indication: GASTROINTESTINAL MOTILITY DISORDER
     Dosage: UNK
     Route: 065

REACTIONS (3)
  - Off label use [Not Recovered/Not Resolved]
  - No adverse event [Unknown]
  - Incorrect product administration duration [Unknown]

NARRATIVE: CASE EVENT DATE: 2017
